FAERS Safety Report 4967228-3 (Version None)
Quarter: 2006Q2

REPORT INFORMATION
  Report Type: 
  Country: None (occurrence: None)
  Receive Date: 20060410
  Receipt Date: 20060329
  Transmission Date: 20061013
  Serious: Yes (Hospitalization)
  Sender: FDA-Public Use
  Company Number: PHEH2006US04241

PATIENT
  Age: 76 Year
  Sex: Female

DRUGS (1)
  1. SANDOSTATIN LAR [Suspect]
     Indication: CARCINOID SYNDROME
     Dosage: 60 MG, QMO
     Route: 030
     Dates: start: 20020305

REACTIONS (3)
  - GAIT DISTURBANCE [None]
  - MUSCULAR WEAKNESS [None]
  - OEDEMA PERIPHERAL [None]
